FAERS Safety Report 9539941 (Version 2)
Quarter: 2013Q4

REPORT INFORMATION
  Report Type: Spontaneous
  Country: JP (occurrence: JP)
  Receive Date: 20130920
  Receipt Date: 20131004
  Transmission Date: 20140711
  Serious: Yes (Other)
  Sender: FDA-Public Use
  Company Number: JP-ASTRAZENECA-2013SE69135

PATIENT
  Sex: Male

DRUGS (6)
  1. XYLOCAINE [Suspect]
     Indication: CONVULSION
  2. SODIUM VALPROATE [Suspect]
     Indication: CONVULSION
     Route: 048
  3. PHENYTOIN [Suspect]
     Indication: CONVULSION
  4. FOSPHENYTOIN [Suspect]
     Indication: CONVULSION
  5. NICARDIPINE HYDROCHLORIDE [Concomitant]
     Indication: HYPERTENSION
  6. AMLODIPINE [Concomitant]
     Indication: HYPERTENSION

REACTIONS (1)
  - Pancytopenia [Recovered/Resolved]
